FAERS Safety Report 14682388 (Version 1)
Quarter: 2018Q1

REPORT INFORMATION
  Report Type: Spontaneous
  Country: AR (occurrence: AR)
  Receive Date: 20180326
  Receipt Date: 20180326
  Transmission Date: 20180509
  Serious: Yes (Other)
  Sender: FDA-Public Use
  Company Number: AR-GILEAD-2018-0327608

PATIENT
  Age: 55 Year
  Sex: Male

DRUGS (7)
  1. DACLATASVIR. [Suspect]
     Active Substance: DACLATASVIR
     Indication: CHRONIC HEPATITIS C
     Dosage: UNK
     Route: 065
     Dates: start: 201609, end: 201703
  2. RIBAVIRIN. [Suspect]
     Active Substance: RIBAVIRIN
     Indication: CHRONIC HEPATITIS C
     Dosage: UNK
     Route: 065
     Dates: start: 201609, end: 201703
  3. DACLATASVIR. [Suspect]
     Active Substance: DACLATASVIR
     Indication: HEPATIC FIBROSIS
  4. SOVALDI [Suspect]
     Active Substance: SOFOSBUVIR
     Indication: HEPATIC FIBROSIS
     Dosage: UNK
     Route: 048
     Dates: start: 201710, end: 201801
  5. RIBAVIRIN. [Suspect]
     Active Substance: RIBAVIRIN
     Indication: HEPATIC FIBROSIS
  6. SOVALDI [Suspect]
     Active Substance: SOFOSBUVIR
     Indication: CHRONIC HEPATITIS C
     Dosage: UNK
     Route: 048
     Dates: start: 201609, end: 201703
  7. ZEPATIER [Suspect]
     Active Substance: ELBASVIR\GRAZOPREVIR
     Indication: HEPATITIS C
     Dosage: UNK
     Route: 065
     Dates: start: 201710, end: 201801

REACTIONS (4)
  - Hepatitis C [Unknown]
  - Treatment failure [Unknown]
  - Genotype drug resistance test positive [Unknown]
  - Hepatitis C [Unknown]

NARRATIVE: CASE EVENT DATE: 2017
